FAERS Safety Report 7417023-0 (Version None)
Quarter: 2011Q2

REPORT INFORMATION
  Report Type: 
  Country: None (occurrence: None)
  Receive Date: 20110406
  Receipt Date: 20110322
  Transmission Date: 20111010
  Serious: Yes (Other)
  Sender: FDA-Public Use
  Company Number: AUR-APL-2011-01060

PATIENT
  Age: 6 Decade
  Sex: Female

DRUGS (4)
  1. GABAPENTIN [Suspect]
     Dosage: 60MG-DAILY
     Dates: start: 20070101, end: 20100101
  2. TOPAMAX [Suspect]
     Indication: EPILEPSY
     Dosage: 70MG-DAILY-ORAL
     Route: 048
  3. PHENYTOIN [Concomitant]
  4. TOPAMAX [Suspect]
     Indication: EPILEPSY
     Dosage: 90MG-DAILY-ORAL
     Route: 048
     Dates: start: 20091001

REACTIONS (8)
  - HYPOAESTHESIA [None]
  - FACIAL PAIN [None]
  - EYE PAIN [None]
  - PAIN IN EXTREMITY [None]
  - EYE HAEMORRHAGE [None]
  - FOREIGN BODY SENSATION IN EYES [None]
  - VISION BLURRED [None]
  - PARAESTHESIA [None]
